FAERS Safety Report 25800841 (Version 1)
Quarter: 2025Q3

REPORT INFORMATION
  Report Type: Spontaneous
  Country: CN (occurrence: CN)
  Receive Date: 20250915
  Receipt Date: 20250915
  Transmission Date: 20251020
  Serious: Yes (Other)
  Sender: ALEXION PHARMACEUTICALS
  Company Number: CN-ASTRAZENECA-202509CHN009663CN

PATIENT
  Age: 75 Year
  Sex: Female
  Weight: 57.4 kg

DRUGS (4)
  1. DAPAGLIFLOZIN [Suspect]
     Active Substance: DAPAGLIFLOZIN
     Indication: Diabetes mellitus
  2. GLICLAZIDE [Concomitant]
     Active Substance: GLICLAZIDE
     Indication: Diabetes mellitus
     Dates: start: 20250822, end: 20250826
  3. Repaglinide and metformin hydrochloride tablets (i) [Concomitant]
     Indication: Diabetes mellitus
     Dates: start: 20250822, end: 20250826
  4. ACARBOSE [Concomitant]
     Active Substance: ACARBOSE
     Indication: Diabetes mellitus

REACTIONS (3)
  - Dry mouth [Unknown]
  - Asthenia [Unknown]
  - Seizure [Unknown]

NARRATIVE: CASE EVENT DATE: 20250825
